FAERS Safety Report 11634903 (Version 1)
Quarter: 2015Q4

REPORT INFORMATION
  Report Type: Spontaneous
  Country: US (occurrence: US)
  Receive Date: 20151015
  Receipt Date: 20151015
  Transmission Date: 20160304
  Serious: No
  Sender: FDA-Public Use
  Company Number: US-SA-2015SA121647

PATIENT
  Sex: Female

DRUGS (4)
  1. AVALIDE [Suspect]
     Active Substance: HYDROCHLOROTHIAZIDE\IRBESARTAN
     Indication: OEDEMA
     Dosage: DOSE: 300MG/25MG?DAILY DOSE: 300MG/25MG?START DATE: 2004 OR 2005
     Route: 065
  2. AVAPRO [Concomitant]
     Active Substance: IRBESARTAN
     Indication: BLOOD PRESSURE MEASUREMENT
  3. FUROSEMIDE. [Concomitant]
     Active Substance: FUROSEMIDE
     Indication: OEDEMA
  4. AVALIDE [Suspect]
     Active Substance: HYDROCHLOROTHIAZIDE\IRBESARTAN
     Indication: BLOOD PRESSURE MEASUREMENT
     Dosage: DOSE: 300MG/25MG?DAILY DOSE: 300MG/25MG?START DATE: 2004 OR 2005
     Route: 065

REACTIONS (1)
  - Blood pressure decreased [Unknown]
